FAERS Safety Report 18648778 (Version 2)
Quarter: 2021Q1

REPORT INFORMATION
  Report Type: Report from Study
  Country: US (occurrence: US)
  Receive Date: 20201222
  Receipt Date: 20210106
  Transmission Date: 20210419
  Serious: Yes (Hospitalization)
  Sender: FDA-Public Use
  Company Number: US-CLOVIS ONCOLOGY-CLO-2020-002233

PATIENT
  Age: 81 Year
  Sex: Female

DRUGS (3)
  1. RUBRACA [Suspect]
     Active Substance: RUCAPARIB CAMSYLATE
     Indication: OVARIAN CANCER
     Dosage: 600 MILLIGRAM, BID
     Route: 048
     Dates: start: 20201120
  2. RUBRACA [Suspect]
     Active Substance: RUCAPARIB CAMSYLATE
     Dosage: 300 MILLIGRAM, BID
     Route: 048
     Dates: start: 20201120, end: 20201210
  3. RUBRACA [Suspect]
     Active Substance: RUCAPARIB CAMSYLATE
     Dosage: 600 MILLIGRAM, BID
     Route: 048
     Dates: start: 20201120, end: 20201125

REACTIONS (27)
  - Paraesthesia [Unknown]
  - Skin abrasion [Unknown]
  - Peripheral swelling [Unknown]
  - Nausea [Not Recovered/Not Resolved]
  - Constipation [Unknown]
  - Groin pain [Unknown]
  - Abdominal pain upper [Not Recovered/Not Resolved]
  - Tremor [Not Recovered/Not Resolved]
  - Urinary incontinence [Unknown]
  - Pain in extremity [Not Recovered/Not Resolved]
  - Decreased appetite [Not Recovered/Not Resolved]
  - Palpitations [Not Recovered/Not Resolved]
  - Product dose omission issue [Unknown]
  - Chest pain [Unknown]
  - Hypoaesthesia [Unknown]
  - Burning sensation [Unknown]
  - Asthenia [Unknown]
  - Fatigue [Not Recovered/Not Resolved]
  - Dizziness [Unknown]
  - Dysarthria [Not Recovered/Not Resolved]
  - Fall [Unknown]
  - Depression [Unknown]
  - Abdominal discomfort [Unknown]
  - Hypokinesia [Not Recovered/Not Resolved]
  - Headache [Not Recovered/Not Resolved]
  - Feeling abnormal [Unknown]
  - Musculoskeletal stiffness [Unknown]

NARRATIVE: CASE EVENT DATE: 2020
